FAERS Safety Report 6208313-8 (Version None)
Quarter: 2009Q2

REPORT INFORMATION
  Report Type: 
  Country: None (occurrence: None)
  Receive Date: 20090529
  Receipt Date: 20090527
  Transmission Date: 20091009
  Serious: Yes (Death, Hospitalization)
  Sender: FDA-Public Use
  Company Number: US-JNJFOC-20090506807

PATIENT
  Sex: Female

DRUGS (4)
  1. RISPERDAL [Suspect]
     Indication: MANIA
     Route: 048
  2. HALOPERIDOL DECANOATE [Suspect]
     Route: 030
  3. HALOPERIDOL DECANOATE [Suspect]
     Indication: MANIA
     Route: 030
  4. DEPAKOTE [Concomitant]
     Route: 065

REACTIONS (4)
  - CATATONIA [None]
  - HYPOPHAGIA [None]
  - PNEUMONIA [None]
  - SOCIAL AVOIDANT BEHAVIOUR [None]
